FAERS Safety Report 8889092 (Version 5)
Quarter: 2015Q2

REPORT INFORMATION
  Report Type: Spontaneous
  Country: US (occurrence: US)
  Receive Date: 20121106
  Receipt Date: 20150630
  Transmission Date: 20150821
  Serious: Yes (Hospitalization, Disabling, Other)
  Sender: FDA-Public Use
  Company Number: US-009507513-1210USA012410

PATIENT
  Sex: Female

DRUGS (4)
  1. FOSAMAX [Suspect]
     Active Substance: ALENDRONATE SODIUM
     Indication: STRESS FRACTURE
     Dosage: UNK UNK, QD
     Route: 048
     Dates: start: 1995
  2. FOSAMAX [Suspect]
     Active Substance: ALENDRONATE SODIUM
     Indication: FEMUR FRACTURE
     Dosage: 10 MG, QD
     Route: 048
     Dates: start: 19990326, end: 20011024
  3. ALENDRONATE SODIUM. [Suspect]
     Active Substance: ALENDRONATE SODIUM
     Dosage: 70 MG, UNK
     Dates: start: 20080211
  4. FOSAMAX [Suspect]
     Active Substance: ALENDRONATE SODIUM
     Dosage: 70 MG, QW
     Route: 048
     Dates: start: 20011024, end: 20100428

REACTIONS (26)
  - Anxiety [Unknown]
  - Off label use [Unknown]
  - Femur fracture [Recovering/Resolving]
  - Intramedullary rod insertion [Unknown]
  - Foot fracture [Recovering/Resolving]
  - Haemorrhoids [Unknown]
  - Osteoporosis [Unknown]
  - Salpingo-oophorectomy bilateral [Unknown]
  - Arthritis [Not Recovered/Not Resolved]
  - Patella fracture [Unknown]
  - Lumbar radiculopathy [Unknown]
  - Gastrooesophageal reflux disease [Unknown]
  - Abdominal hernia repair [Unknown]
  - Restless legs syndrome [Unknown]
  - Osteoarthritis [Unknown]
  - Fibromyalgia [Unknown]
  - Colitis ulcerative [Unknown]
  - Osteopenia [Unknown]
  - Bursitis [Not Recovered/Not Resolved]
  - Rotator cuff syndrome [Not Recovered/Not Resolved]
  - Hernia [Unknown]
  - Foot fracture [Recovered/Resolved]
  - Hyperlipidaemia [Unknown]
  - Patellofemoral pain syndrome [Unknown]
  - Colporrhaphy [Unknown]
  - Depression [Unknown]

NARRATIVE: CASE EVENT DATE: 1995
